FAERS Safety Report 8388591-X (Version None)
Quarter: 2012Q2

REPORT INFORMATION
  Report Type: 
  Country: None (occurrence: None)
  Receive Date: 20120525
  Receipt Date: 20120521
  Transmission Date: 20120825
  Serious: Yes (Hospitalization, Other)
  Sender: FDA-Public Use
  Company Number: FR-ABBOTT-12P-056-0937697-00

PATIENT
  Sex: Male

DRUGS (13)
  1. CLARITHROMYCIN [Suspect]
     Dates: start: 20111114
  2. ETHAMBUTOL HYDROCHLORIDE [Suspect]
     Indication: ATYPICAL MYCOBACTERIAL INFECTION
     Route: 048
     Dates: start: 20111007, end: 20111013
  3. TRAMADOL HCL [Suspect]
     Indication: ARTHRALGIA
     Route: 048
     Dates: start: 20110924, end: 20111017
  4. VISIPAQUE [Suspect]
     Indication: PRODUCT USED FOR UNKNOWN INDICATION
     Dosage: ONCE
     Route: 042
     Dates: start: 20111013
  5. RIFABUTIN [Suspect]
     Indication: ATYPICAL MYCOBACTERIAL INFECTION
     Route: 048
     Dates: start: 20111007, end: 20111013
  6. ETHAMBUTOL HYDROCHLORIDE [Suspect]
     Dates: start: 20111117
  7. ETHAMBUTOL HYDROCHLORIDE [Suspect]
     Dates: start: 20111015, end: 20111017
  8. COLCHICINE [Suspect]
     Indication: ARTHRALGIA
     Dosage: 3 1ST DAY; 2 2ND + 3RD DAY; 1 SINCE 4TH
     Route: 048
     Dates: start: 20111004, end: 20111017
  9. RIFABUTIN [Suspect]
     Dates: start: 20111015, end: 20111017
  10. RIFABUTIN [Suspect]
     Dates: start: 20111120
  11. CLARITHROMYCIN [Suspect]
     Indication: ATYPICAL MYCOBACTERIAL INFECTION
     Route: 048
     Dates: start: 20111007, end: 20111013
  12. ACUPAN [Suspect]
     Indication: PAIN
     Route: 048
     Dates: start: 20111003, end: 20111007
  13. CLARITHROMYCIN [Suspect]
     Dates: start: 20111015, end: 20111017

REACTIONS (12)
  - LEUKOPENIA [None]
  - GENERAL PHYSICAL HEALTH DETERIORATION [None]
  - DRUG INEFFECTIVE [None]
  - PYREXIA [None]
  - NEUTROPENIA [None]
  - ADVERSE DRUG REACTION [None]
  - LIVER FUNCTION TEST ABNORMAL [None]
  - PURPURA [None]
  - HYPERHIDROSIS [None]
  - RASH GENERALISED [None]
  - ERYTHEMA [None]
  - SKIN EXFOLIATION [None]
